FAERS Safety Report 18706197 (Version 2)
Quarter: 2021Q1

REPORT INFORMATION
  Report Type: Spontaneous
  Country: US (occurrence: US)
  Receive Date: 20210106
  Receipt Date: 20210217
  Transmission Date: 20210419
  Serious: No
  Sender: FDA-Public Use
  Company Number: US-LUPIN PHARMACEUTICALS INC.-2020-03126

PATIENT

DRUGS (1)
  1. FAMOTIDINE FOR ORAL SUSPENSION [Suspect]
     Active Substance: FAMOTIDINE
     Indication: PRODUCT USED FOR UNKNOWN INDICATION
     Dosage: UNK (50 ML BOTTLE)
     Route: 048
     Dates: start: 202005

REACTIONS (3)
  - No adverse event [Unknown]
  - Product colour issue [Unknown]
  - Poor quality product administered [Unknown]
